FAERS Safety Report 5170497-0 (Version None)
Quarter: 2006Q4

REPORT INFORMATION
  Report Type: 
  Country: None (occurrence: None)
  Receive Date: 20061204
  Receipt Date: 20061122
  Transmission Date: 20070319
  Serious: Yes (Other)
  Sender: FDA-Public Use
  Company Number: 2006142091

PATIENT
  Age: 29 Year
  Sex: Female
  Weight: 43 kg

DRUGS (1)
  1. DOSTINEX [Suspect]
     Indication: HYPERPROLACTINAEMIA
     Dosage: 1 IN 1 WK, ORAL
     Route: 048
     Dates: start: 20050706

REACTIONS (2)
  - CERVIX CARCINOMA [None]
  - NAUSEA [None]
